FAERS Safety Report 6471963-8 (Version None)
Quarter: 2009Q4

REPORT INFORMATION
  Report Type: 
  Country: None (occurrence: None)
  Receive Date: 20091203
  Receipt Date: 20080416
  Transmission Date: 20100525
  Serious: Yes (Hospitalization)
  Sender: FDA-Public Use
  Company Number: US-ELI_LILLY_AND_COMPANY-US200804004216

PATIENT
  Sex: Male

DRUGS (11)
  1. CYMBALTA [Suspect]
     Indication: NEUROPATHY PERIPHERAL
     Dosage: 60 MG, 2/D
     Dates: start: 20070601
  2. COUMADIN [Concomitant]
     Dosage: 2.5 MG, UNK
  3. GABAPENTIN [Concomitant]
     Dosage: 600 MG, 3/D
  4. NITROGLYCERIN [Concomitant]
  5. LISINOPRIL [Concomitant]
     Dosage: 20 MG, UNK
  6. LASIX [Concomitant]
     Dosage: 40 MG, 2/D
  7. FLOMAX [Concomitant]
     Dosage: 0.4 MG, UNK
  8. COREG [Concomitant]
     Dosage: 10 MG, UNK
  9. VITAMIN B COMPLEX CAP [Concomitant]
  10. MAALOX [Concomitant]
     Dosage: UNK, AS NEEDED
  11. MILK OF MAGNESIA TAB [Concomitant]
     Dosage: UNK, AS NEEDED

REACTIONS (9)
  - ATRIAL FIBRILLATION [None]
  - BLOOD MAGNESIUM DECREASED [None]
  - CARDIAC FAILURE [None]
  - DIABETES MELLITUS [None]
  - DRUG LEVEL ABOVE THERAPEUTIC [None]
  - HYPOGLYCAEMIA [None]
  - HYPONATRAEMIA [None]
  - LIVER FUNCTION TEST ABNORMAL [None]
  - SYNCOPE [None]
